FAERS Safety Report 6963836-9 (Version None)
Quarter: 2010Q3

REPORT INFORMATION
  Report Type: 
  Country: None (occurrence: None)
  Receive Date: 20100830
  Receipt Date: 20100813
  Transmission Date: 20110219
  Serious: Yes (Death)
  Sender: FDA-Public Use
  Company Number: 2010003361

PATIENT
  Sex: Male

DRUGS (9)
  1. ERLOTINIB HYDROCHLORIDE [Suspect]
     Indication: NON-SMALL CELL LUNG CANCER
     Dosage: 150 MG QD ORAL
     Route: 048
     Dates: start: 20091020, end: 20100213
  2. PREDNICARBATE [Concomitant]
  3. CLOBETASOL PROPIONATE [Concomitant]
  4. FEXOFENADINE HCL [Concomitant]
  5. PREDNISOLONE [Concomitant]
  6. ACETYLCYSTEINE [Concomitant]
  7. MOSAPRIDE CITRATE (MOSAPRIDE CITRATE) [Concomitant]
  8. FENOTEROL (FENOTEROL) [Concomitant]
  9. AMBROXOL HYDROCHLORIDE (AMBROXOL HYDROCHLORIDE) [Concomitant]

REACTIONS (1)
  - PNEUMONIA [None]
